FAERS Safety Report 20006565 (Version 1)
Quarter: 2021Q4

REPORT INFORMATION
  Report Type: Spontaneous
  Country: CA (occurrence: CA)
  Receive Date: 20211028
  Receipt Date: 20211028
  Transmission Date: 20220303
  Serious: Yes (Hospitalization, Other)
  Sender: FDA-Public Use
  Company Number: CA-GLAXOSMITHKLINE-CA2021GSK181116

PATIENT
  Age: 73 Year
  Sex: Male

DRUGS (1)
  1. AVODART [Suspect]
     Active Substance: DUTASTERIDE
     Indication: Benign prostatic hyperplasia
     Dosage: 0.5 MG, QD
     Route: 048
     Dates: start: 2012

REACTIONS (10)
  - Prostate cancer [Unknown]
  - Ejaculation failure [Unknown]
  - Myocardial infarction [Unknown]
  - Prostate cancer stage I [Unknown]
  - Prostatomegaly [Unknown]
  - Prostatic obstruction [Unknown]
  - Radical prostatectomy [Unknown]
  - Prostatectomy [Unknown]
  - Prostatic operation [Unknown]
  - Erectile dysfunction [Unknown]

NARRATIVE: CASE EVENT DATE: 20120201
